FAERS Safety Report 11306861 (Version 2)
Quarter: 2016Q1

REPORT INFORMATION
  Report Type: Spontaneous
  Country: US (occurrence: US)
  Receive Date: 20150723
  Receipt Date: 20160115
  Transmission Date: 20160525
  Serious: No
  Sender: FDA-Public Use
  Company Number: US-ASTELLAS-2015US016926

PATIENT
  Age: 87 Year
  Sex: Female

DRUGS (2)
  1. DIGOXIN. [Concomitant]
     Active Substance: DIGOXIN
     Indication: PRODUCT USED FOR UNKNOWN INDICATION
     Dosage: 0.25 MG, TWICE DAILY
     Route: 065
  2. MYRBETRIQ [Suspect]
     Active Substance: MIRABEGRON
     Indication: PRODUCT USED FOR UNKNOWN INDICATION
     Route: 065
     Dates: start: 20150507, end: 20150525

REACTIONS (8)
  - Pain in extremity [Unknown]
  - Adverse drug reaction [Unknown]
  - Urinary tract infection [Unknown]
  - Arthralgia [Unknown]
  - Joint stiffness [Unknown]
  - Groin pain [Recovered/Resolved]
  - Bladder spasm [Unknown]
  - Constipation [Unknown]

NARRATIVE: CASE EVENT DATE: 201505
